FAERS Safety Report 8196662-6 (Version None)
Quarter: 2012Q1

REPORT INFORMATION
  Report Type: 
  Country: None (occurrence: None)
  Receive Date: 20120229
  Receipt Date: 20100309
  Transmission Date: 20120608
  Serious: Yes (Hospitalization)
  Sender: FDA-Public Use
  Company Number: 009086

PATIENT
  Sex: Male

DRUGS (2)
  1. CONIVAPTAN [Concomitant]
  2. SAMSCA [Suspect]
     Indication: HYPONATRAEMIA
     Dosage: 15 MG,  ORAL
     Route: 048

REACTIONS (1)
  - BLOOD SODIUM INCREASED [None]
